FAERS Safety Report 21172371 (Version 4)
Quarter: 2023Q1

REPORT INFORMATION
  Report Type: Spontaneous
  Country: US (occurrence: US)
  Receive Date: 20220804
  Receipt Date: 20230327
  Transmission Date: 20230418
  Serious: Yes (Hospitalization, Other)
  Sender: FDA-Public Use
  Company Number: US-BRISTOL-MYERS SQUIBB COMPANY-2022-084421

PATIENT
  Age: 77 Year
  Sex: Female

DRUGS (2)
  1. REVLIMID [Suspect]
     Active Substance: LENALIDOMIDE
     Indication: Plasma cell myeloma
     Dosage: TAKE 1 CAPSULE (2.5 MG TOTAL) BY MOUTH.
     Route: 048
     Dates: start: 20170309, end: 20220808
  2. REVLIMID [Suspect]
     Active Substance: LENALIDOMIDE
     Dosage: 1 CAPSULE BY MOUTH DAILY FOR 28 DAYS
     Route: 048

REACTIONS (4)
  - Blood calcium decreased [Unknown]
  - Blood magnesium decreased [Unknown]
  - Hospitalisation [Unknown]
  - Drug ineffective [Not Recovered/Not Resolved]
